FAERS Safety Report 19791079 (Version 1)
Quarter: 2021Q3

REPORT INFORMATION
  Report Type: Spontaneous
  Country: BR (occurrence: BR)
  Receive Date: 20210906
  Receipt Date: 20210906
  Transmission Date: 20211014
  Serious: Yes (Other)
  Sender: FDA-Public Use
  Company Number: BR-SUN PHARMACEUTICAL INDUSTRIES LTD-2021R1-309994

PATIENT
  Age: 40 Year
  Sex: Female
  Weight: 50 kg

DRUGS (1)
  1. ESOMEPRAZOLE. [Suspect]
     Active Substance: ESOMEPRAZOLE MAGNESIUM
     Indication: GASTRITIS
     Dosage: 40 MILLIGRAM, QD (AT FASTING)
     Route: 048
     Dates: start: 20210823, end: 20210828

REACTIONS (3)
  - Condition aggravated [Unknown]
  - Reflux gastritis [Not Recovered/Not Resolved]
  - Nausea [Not Recovered/Not Resolved]

NARRATIVE: CASE EVENT DATE: 202108
